FAERS Safety Report 8346383-1 (Version None)
Quarter: 2012Q2

REPORT INFORMATION
  Report Type: 
  Country: None (occurrence: None)
  Receive Date: 20120507
  Receipt Date: 20120507
  Transmission Date: 20120825
  Serious: Yes (Hospitalization)
  Sender: FDA-Public Use
  Company Number: None

PATIENT
  Age: 57 Year
  Sex: Male
  Weight: 94.5 kg

DRUGS (8)
  1. ACYCLOVIR [Concomitant]
  2. BACTRIM [Concomitant]
  3. FERRIPROX [Suspect]
     Indication: IRON OVERLOAD
     Dosage: 1500 MG TID PO
     Route: 048
     Dates: start: 20120306, end: 20120430
  4. DILTIAZEM [Concomitant]
  5. CLARITIN [Concomitant]
  6. METOPROLOL TARTRATE [Concomitant]
  7. FLUCONAZOLE [Concomitant]
  8. PREDNISONE TAB [Concomitant]

REACTIONS (1)
  - MYOCARDIAL INFARCTION [None]
